FAERS Safety Report 26188779 (Version 1)
Quarter: 2025Q4

REPORT INFORMATION
  Report Type: Spontaneous
  Country: JP (occurrence: JP)
  Receive Date: 20251222
  Receipt Date: 20251222
  Transmission Date: 20260118
  Serious: Yes (Other)
  Sender: SANOFI AVENTIS
  Company Number: JP-SA-2025SA373748

PATIENT
  Age: 71 Year
  Sex: Male

DRUGS (1)
  1. PLAVIX [Suspect]
     Active Substance: CLOPIDOGREL BISULFATE
     Indication: Product used for unknown indication
     Route: 048

REACTIONS (6)
  - Pulmonary oedema [Unknown]
  - Circulatory collapse [Unknown]
  - Acute respiratory failure [Unknown]
  - Pulmonary haemorrhage [Unknown]
  - Sputum increased [Unknown]
  - Haemoptysis [Unknown]
